FAERS Safety Report 7937037-1 (Version None)
Quarter: 2011Q4

REPORT INFORMATION
  Report Type: 
  Country: None (occurrence: None)
  Receive Date: 20111123
  Receipt Date: 20111118
  Transmission Date: 20120403
  Serious: Yes (Hospitalization)
  Sender: FDA-Public Use
  Company Number: PT-ROCHE-765037

PATIENT
  Sex: Female
  Weight: 65.4 kg

DRUGS (3)
  1. FUROSEMIDA [Concomitant]
  2. AVASTIN [Suspect]
     Indication: OVARIAN EPITHELIAL CANCER
     Dosage: LAST DOSE PRIOR TO SAE: 15 FEB 2011, PERMANENTLY DISCONTINUED
     Route: 042
     Dates: start: 20110104, end: 20110215
  3. TOPOTECAN HYDROCHLORIDE [Suspect]
     Indication: OVARIAN EPITHELIAL CANCER
     Dosage: FREQ: ON DAY 1, 8 AND 15, LAST DOSE PRIOR TO SAE: 15 FEB 2011, PERMANENTLY DISCONTINUED
     Route: 042
     Dates: start: 20110104, end: 20110215

REACTIONS (1)
  - HAEMORRHAGIC ASCITES [None]
